FAERS Safety Report 9276501 (Version 1)
Quarter: 2013Q2

REPORT INFORMATION
  Report Type: Spontaneous
  Country: AU (occurrence: AU)
  Receive Date: 20130507
  Receipt Date: 20130507
  Transmission Date: 20140414
  Serious: Yes (Life-Threatening, Hospitalization, Other)
  Sender: FDA-Public Use
  Company Number: AU-BAYER-2013-056200

PATIENT
  Age: 60 Year
  Sex: Female

DRUGS (23)
  1. ULTRAVIST [Suspect]
     Indication: COMPUTERISED TOMOGRAM
     Dosage: 90 ML, ONCE
     Route: 042
     Dates: start: 20110525, end: 20110525
  2. ADVANTAN [Concomitant]
     Dosage: 0.1 BD
     Route: 061
  3. AMIODARONE HYDROCHLORIDE [Concomitant]
     Dosage: 200 MG, UNK
     Route: 048
  4. COVERSYL [Concomitant]
     Dosage: 10 MG/24HR, UNK
     Route: 048
  5. DABEX XR [Concomitant]
     Dosage: 500 MG, 1 TID INCREASE TO 50 HS
     Route: 048
  6. ENDEP [Concomitant]
     Dosage: 10 MG, UNK
     Route: 048
  7. FOLIC ACID [Concomitant]
     Dosage: 5 MG, UNK
     Route: 048
  8. KARVEA [Concomitant]
     Dosage: 300 MG, UNK
  9. LANOXIN [Concomitant]
     Dosage: 250 MCG  1/2 MONDAY, WED,FRI
  10. LASIX [Concomitant]
     Dosage: 40 MG, UNK
  11. METHOTREXATE [Concomitant]
     Dosage: 10 MG, UNK
     Route: 048
  12. METOPROLOL TARTRATE [Concomitant]
     Dosage: 50 MG, 1/2 TAB BD
     Route: 048
  13. NORVASC [Concomitant]
     Dosage: 5 MG, UNK
     Route: 048
  14. OROXINE [Concomitant]
     Dosage: 50 ?G, QD
     Route: 048
  15. PANAMAX [Concomitant]
     Dosage: 500 MG, 1-2 Q 4HR. PRN.
  16. PLAVIX [Concomitant]
     Dosage: 75 MG, UNK
     Route: 048
  17. PREDNISONE [Concomitant]
     Dosage: 5 MG, 2 DAILY M.D.U.
  18. SERC [Concomitant]
     Dosage: 16 MG, 1/2  TID
     Route: 048
  19. STEMETIL [Concomitant]
     Dosage: 5 MG, 1 QID. PRN
     Route: 048
  20. TEMAZE [Concomitant]
     Dosage: 10 MG, 1-2 HS. PRN
     Route: 048
  21. WARFARIN SODIUM [Concomitant]
     Dosage: 2 MG, M.D.U
     Route: 048
  22. WARFARIN SODIUM [Concomitant]
     Dosage: 1 MG, M.D.U
     Route: 048
  23. ZOCOR [Concomitant]
     Dosage: 40 MG, 1/2 BD
     Route: 048

REACTIONS (5)
  - Hypotension [Recovered/Resolved]
  - Erythema [Recovered/Resolved]
  - Diarrhoea [Recovered/Resolved]
  - Sputum discoloured [Recovered/Resolved]
  - Cough [Recovered/Resolved]
